FAERS Safety Report 5748682-6 (Version None)
Quarter: 2008Q2

REPORT INFORMATION
  Report Type: 
  Country: None (occurrence: None)
  Receive Date: 20080521
  Receipt Date: 20080506
  Transmission Date: 20081010
  Serious: Yes (Death)
  Sender: FDA-Public Use
  Company Number: B0520435A

PATIENT
  Age: 41 Year
  Sex: Female

DRUGS (8)
  1. RANITIDINE HYDROCHLORIDE [Suspect]
  2. GLATIRAMER ACETATE (FORMULATION UNKNOWN) (GLATIRAMER ACETATE) [Suspect]
     Indication: MULTIPLE SCLEROSIS
  3. METHYLPHENIDATE HCL [Suspect]
  4. ZALEPLON (FORMULATION UNKNOWN) (ZALEPLON) [Suspect]
  5. SERTRALINE [Suspect]
  6. PREDNISONE [Suspect]
  7. TOLTERODINE (FORMULATION UNKNOWN) (TOLTERODINE) [Suspect]
  8. BACLOFEN [Suspect]

REACTIONS (12)
  - ASPIRATION [None]
  - BRAIN OEDEMA [None]
  - COMA [None]
  - DISORIENTATION [None]
  - DYSARTHRIA [None]
  - INTENTIONAL OVERDOSE [None]
  - PNEUMONITIS [None]
  - PUPIL FIXED [None]
  - RENAL FAILURE [None]
  - RHABDOMYOLYSIS [None]
  - STATUS EPILEPTICUS [None]
  - VOMITING [None]
